FAERS Safety Report 7802196-8 (Version None)
Quarter: 2011Q4

REPORT INFORMATION
  Report Type: 
  Country: None (occurrence: None)
  Receive Date: 20111007
  Receipt Date: 20110923
  Transmission Date: 20120403
  Serious: Yes (Hospitalization)
  Sender: FDA-Public Use
  Company Number: FR-SANOFI-AVENTIS-2011SA062279

PATIENT
  Age: 87 Year
  Sex: Male

DRUGS (13)
  1. PROSCAR [Concomitant]
  2. ENDOTELON [Concomitant]
  3. HEPARIN SODIUM [Suspect]
     Route: 042
     Dates: start: 20110125, end: 20110125
  4. PREVISCAN [Concomitant]
  5. ALDALIX [Concomitant]
  6. CORVASAL [Concomitant]
  7. NITROGLYCERIN [Concomitant]
  8. PANTOPRAZOLE [Suspect]
     Route: 048
     Dates: start: 20110124, end: 20110206
  9. PLAVIX [Suspect]
     Route: 048
     Dates: start: 20110125, end: 20110125
  10. IOMEPROL [Suspect]
     Indication: ARTERIOGRAM CORONARY
     Route: 042
     Dates: start: 20110125, end: 20110125
  11. ASPIRIN [Concomitant]
     Route: 048
     Dates: start: 20110124
  12. TENORMIN [Concomitant]
  13. DIGOXIN [Concomitant]

REACTIONS (1)
  - FIXED ERUPTION [None]
